FAERS Safety Report 18734337 (Version 1)
Quarter: 2021Q1

REPORT INFORMATION
  Report Type: Spontaneous
  Country: CA (occurrence: CA)
  Receive Date: 20210113
  Receipt Date: 20210113
  Transmission Date: 20210419
  Serious: Yes (Hospitalization)
  Sender: FDA-Public Use
  Company Number: CA-ACCORD-213571

PATIENT
  Age: 59 Year
  Sex: Male
  Weight: 83 kg

DRUGS (15)
  1. METHOTREXATE. [Suspect]
     Active Substance: METHOTREXATE
     Indication: NON-HODGKIN^S LYMPHOMA
  2. CYTARABINE/CYTARABINE HYDROCHLORIDE/CYTARABINE OCFOSFATE [Suspect]
     Active Substance: CYTARABINE
     Indication: NON-HODGKIN^S LYMPHOMA
  3. FILGRASTIM [Concomitant]
     Active Substance: FILGRASTIM
  4. DIPHENHYDRAMINE. [Concomitant]
     Active Substance: DIPHENHYDRAMINE
  5. PROCHLORPERAZINE. [Concomitant]
     Active Substance: PROCHLORPERAZINE
  6. METOCLOPRAMIDE. [Concomitant]
     Active Substance: METOCLOPRAMIDE
  7. LORAZEPAM. [Concomitant]
     Active Substance: LORAZEPAM
  8. SULFAMETHOXAZOLE/TRIMETHOPRIM [Concomitant]
     Active Substance: SULFAMETHOXAZOLE\TRIMETHOPRIM
  9. FOLIC ACID. [Concomitant]
     Active Substance: FOLIC ACID
  10. ONDANSETRON [Concomitant]
     Active Substance: ONDANSETRON
  11. FUROSEMIDE. [Concomitant]
     Active Substance: FUROSEMIDE
  12. PARACETAMOL [Concomitant]
     Active Substance: ACETAMINOPHEN
  13. RITUXAN [Suspect]
     Active Substance: RITUXIMAB
     Indication: NON-HODGKIN^S LYMPHOMA
  14. FRAGMIN [Concomitant]
     Active Substance: DALTEPARIN SODIUM
  15. DEXAMETHASONE. [Concomitant]
     Active Substance: DEXAMETHASONE
     Route: 014

REACTIONS (1)
  - Febrile neutropenia [Recovered/Resolved]
